FAERS Safety Report 15903120 (Version 5)
Quarter: 2022Q1

REPORT INFORMATION
  Report Type: Spontaneous
  Country: ES (occurrence: ES)
  Receive Date: 20190202
  Receipt Date: 20220221
  Transmission Date: 20220423
  Serious: Yes (Other)
  Sender: FDA-Public Use
  Company Number: None

PATIENT
  Age: 29 Year
  Sex: Female

DRUGS (2)
  1. TOPIRAMATE [Suspect]
     Active Substance: TOPIRAMATE
     Indication: Seizure
     Dosage: INITIAL DOSE 25 MG/24 H FOR 7 DAYS AND 50 MG/DAILY FOR 2 DAYS
     Route: 065
  2. TOPIRAMATE [Suspect]
     Active Substance: TOPIRAMATE
     Indication: Seizure
     Dosage: 50 MILLIGRAM, ONCE A DAY
     Route: 065

REACTIONS (8)
  - Angle closure glaucoma [Recovered/Resolved]
  - Maculopathy [Recovered/Resolved]
  - Visual acuity reduced [Recovered/Resolved]
  - Acute myopia [Recovered/Resolved]
  - Retinal disorder [Recovered/Resolved]
  - Conjunctival oedema [Recovered/Resolved]
  - Anterior chamber disorder [Recovered/Resolved]
  - Conjunctival hyperaemia [Recovered/Resolved]
